FAERS Safety Report 7852935-5 (Version None)
Quarter: 2011Q4

REPORT INFORMATION
  Report Type: 
  Country: None (occurrence: None)
  Receive Date: 20111026
  Receipt Date: 20110928
  Transmission Date: 20120403
  Serious: No
  Sender: FDA-Public Use
  Company Number: US-BAYER-2011-093498

PATIENT
  Age: 63 Year
  Sex: Male
  Weight: 91 kg

DRUGS (1)
  1. ALEVE (CAPLET) [Suspect]
     Indication: ANALGESIC THERAPY
     Dosage: 440 MG, ONCE, BOTTLE COUNT 50S
     Route: 048
     Dates: start: 20110928, end: 20110928

REACTIONS (3)
  - HYPERSENSITIVITY [None]
  - ERYTHEMA [None]
  - PRURITUS [None]
